FAERS Safety Report 13262288 (Version 1)
Quarter: 2017Q1

REPORT INFORMATION
  Report Type: Spontaneous
  Country: IL (occurrence: IL)
  Receive Date: 20170222
  Receipt Date: 20170222
  Transmission Date: 20170428
  Serious: Yes (Life-Threatening, Hospitalization)
  Sender: FDA-Public Use
  Company Number: IL-ROCHE-1895523

PATIENT
  Age: 86 Year
  Sex: Female

DRUGS (1)
  1. XOLAIR [Suspect]
     Active Substance: OMALIZUMAB
     Indication: PRODUCT USED FOR UNKNOWN INDICATION
     Route: 058
     Dates: start: 20150728

REACTIONS (4)
  - Atrial fibrillation [Recovering/Resolving]
  - Cardiac failure congestive [Recovering/Resolving]
  - Mitral valve incompetence [Recovering/Resolving]
  - Tricuspid valve incompetence [Recovering/Resolving]

NARRATIVE: CASE EVENT DATE: 20161227
